FAERS Safety Report 13667052 (Version 1)
Quarter: 2017Q2

REPORT INFORMATION
  Report Type: Spontaneous
  Country: US (occurrence: US)
  Receive Date: 20170619
  Receipt Date: 20170619
  Transmission Date: 20170830
  Serious: Yes (Other)
  Sender: FDA-Public Use
  Company Number: US-ROCHE-1400814

PATIENT
  Sex: Female

DRUGS (2)
  1. XELODA [Suspect]
     Active Substance: CAPECITABINE
     Indication: BONE CANCER
     Dosage: 3 BID, 14 DAYS THEN 7 DAYS OFF
     Route: 065
     Dates: start: 20140414, end: 20140418
  2. XELODA [Suspect]
     Active Substance: CAPECITABINE
     Indication: METASTASES TO BONE MARROW

REACTIONS (4)
  - Pain in extremity [Recovered/Resolved]
  - Diarrhoea [Recovered/Resolved]
  - Neuropathy peripheral [Recovered/Resolved]
  - Dizziness [Recovered/Resolved]
